FAERS Safety Report 24695853 (Version 2)
Quarter: 2025Q3

REPORT INFORMATION
  Report Type: Spontaneous
  Country: US (occurrence: US)
  Receive Date: 20241204
  Receipt Date: 20250810
  Transmission Date: 20251020
  Serious: No
  Sender: ALEXION PHARMACEUTICALS
  Company Number: US-AstraZeneca-CH-00760298AM

PATIENT
  Sex: Female

DRUGS (1)
  1. SAPHNELO [Suspect]
     Active Substance: ANIFROLUMAB-FNIA
     Route: 065

REACTIONS (5)
  - Dyspnoea [Unknown]
  - Heart rate abnormal [Unknown]
  - Fatigue [Unknown]
  - Sinusitis [Unknown]
  - Systolic dysfunction [Unknown]
